FAERS Safety Report 5932473-7 (Version None)
Quarter: 2008Q4

REPORT INFORMATION
  Report Type: 
  Country: None (occurrence: None)
  Receive Date: 20081028
  Receipt Date: 20081016
  Transmission Date: 20090506
  Serious: Yes (Other)
  Sender: FDA-Public Use
  Company Number: US-ROCHE-592106

PATIENT
  Age: 28 Year
  Sex: Female

DRUGS (2)
  1. ACCUTANE [Suspect]
     Indication: ACNE
     Route: 065
     Dates: end: 20080901
  2. SOTRET [Suspect]
     Indication: ACNE
     Route: 065

REACTIONS (2)
  - LUPUS-LIKE SYNDROME [None]
  - PNEUMONIA [None]
